FAERS Safety Report 17934618 (Version 2)
Quarter: 2020Q3

REPORT INFORMATION
  Report Type: Report from Study
  Country: MX (occurrence: MX)
  Receive Date: 20200624
  Receipt Date: 20200630
  Transmission Date: 20201105
  Serious: Yes (Other)
  Sender: FDA-Public Use
  Company Number: NVSC2020MX175683

PATIENT
  Age: 40 Year
  Sex: Female
  Weight: 100 kg

DRUGS (8)
  1. SEEBRI BREEZHALER [Suspect]
     Active Substance: GLYCOPYRROLATE
     Indication: PNEUMONITIS
  2. PREDNISONE. [Concomitant]
     Active Substance: PREDNISONE
     Indication: DERMATOMYOSITIS
     Dosage: 5 MG, QD
     Route: 048
     Dates: start: 201608
  3. SEEBRI BREEZHALER [Suspect]
     Active Substance: GLYCOPYRROLATE
     Indication: DERMATOMYOSITIS
     Dosage: 44 UG, IN THE AFTERNOON
     Route: 055
     Dates: start: 201610
  4. ONBRIZE BREEZHALER [Suspect]
     Active Substance: INDACATEROL MALEATE
     Indication: PNEUMONITIS
  5. MIFLONIDE [Suspect]
     Active Substance: BUDESONIDE
     Indication: PNEUMONITIS
     Dosage: 200 UG, TID
     Route: 055
     Dates: start: 201708
  6. MYCOPHENOLIC ACID. [Concomitant]
     Active Substance: MYCOPHENOLIC ACID
     Indication: DERMATOMYOSITIS
     Dosage: 500 MG, TID
     Route: 048
     Dates: start: 201608
  7. MIFLONIDE [Suspect]
     Active Substance: BUDESONIDE
     Indication: DERMATOMYOSITIS
     Dosage: 400 UG, TID
     Route: 055
     Dates: start: 201610, end: 201708
  8. ONBRIZE BREEZHALER [Suspect]
     Active Substance: INDACATEROL MALEATE
     Indication: DERMATOMYOSITIS
     Dosage: 150 UG, IN THE MORNING
     Route: 055
     Dates: start: 201610

REACTIONS (8)
  - Condition aggravated [Not Recovered/Not Resolved]
  - Dyspnoea [Not Recovered/Not Resolved]
  - Product use in unapproved indication [Unknown]
  - Obesity [Unknown]
  - Pneumonitis [Not Recovered/Not Resolved]
  - Sleep apnoea syndrome [Unknown]
  - Cushing^s syndrome [Unknown]
  - Fibromyalgia [Unknown]

NARRATIVE: CASE EVENT DATE: 201610
